FAERS Safety Report 16446503 (Version 1)
Quarter: 2019Q2

REPORT INFORMATION
  Report Type: Report from Study
  Country: NO (occurrence: NO)
  Receive Date: 20190618
  Receipt Date: 20190618
  Transmission Date: 20190711
  Serious: Yes (Other)
  Sender: FDA-Public Use
  Company Number: NO-PFIZER INC-2019256804

PATIENT
  Sex: Male

DRUGS (7)
  1. VINCRISTINE SULFATE. [Suspect]
     Active Substance: VINCRISTINE SULFATE
     Indication: TESTICULAR GERM CELL TUMOUR
     Dosage: UNK UNK, CYCLIC
  2. CISPLATIN. [Suspect]
     Active Substance: CISPLATIN
     Indication: TESTICULAR GERM CELL TUMOUR
     Dosage: UNK, CYCLIC (CUMULATIVE DOSE 1080 MG)
  3. CCNU [Suspect]
     Active Substance: LOMUSTINE
     Indication: TESTICULAR GERM CELL TUMOUR
     Dosage: UNK, CYCLIC (CUMULATIVE DOSE: 1120 MG)
  4. VINBLASTIN [Suspect]
     Active Substance: VINBLASTINE
     Indication: TESTICULAR GERM CELL TUMOUR
     Dosage: UNK, CYCLIC (CUMULATIVE DOSE: 102 MG)
  5. BLEOMYCIN [Suspect]
     Active Substance: BLEOMYCIN SULFATE
     Indication: TESTICULAR GERM CELL TUMOUR
     Dosage: UNK, CYCLIC (CUMULATIVE DOSE: 380)
  6. CYCLOPHOSPHAMIDE. [Suspect]
     Active Substance: CYCLOPHOSPHAMIDE
     Indication: TESTICULAR GERM CELL TUMOUR
     Dosage: UNK UNK, CYCLIC
  7. ADRIAMYCIN [Suspect]
     Active Substance: DOXORUBICIN HYDROCHLORIDE
     Indication: TESTICULAR GERM CELL TUMOUR
     Dosage: UNK UNK, CYCLIC

REACTIONS (3)
  - Second primary malignancy [Unknown]
  - Basal cell carcinoma [Unknown]
  - Polyneuropathy [Unknown]
